FAERS Safety Report 7719451-2 (Version None)
Quarter: 2011Q3

REPORT INFORMATION
  Report Type: 
  Country: None (occurrence: None)
  Receive Date: 20110830
  Receipt Date: 20110114
  Transmission Date: 20111222
  Serious: Yes (Life-Threatening, Hospitalization, Other)
  Sender: FDA-Public Use
  Company Number: GB-BAXTER-2011BH000354

PATIENT
  Age: 34 Year
  Sex: Female

DRUGS (8)
  1. THIAMINE [Concomitant]
     Route: 042
  2. LORATADINE [Concomitant]
     Indication: PRODUCT USED FOR UNKNOWN INDICATION
     Route: 065
  3. ACETAMINOPHEN [Suspect]
     Indication: INTENTIONAL OVERDOSE
     Route: 048
  4. CHLORDIAZEPOXIDE [Concomitant]
     Route: 048
  5. ACETYLCYSTEINE [Suspect]
     Route: 042
  6. FLUOXETINE [Concomitant]
     Indication: DEPRESSION
     Route: 065
  7. ACETYLCYSTEINE [Concomitant]
     Indication: PRODUCT USED FOR UNKNOWN INDICATION
     Route: 065
  8. DEXTROSE 5% [Suspect]
     Route: 042

REACTIONS (8)
  - ELECTROCARDIOGRAM QT PROLONGED [None]
  - VENTRICULAR TACHYCARDIA [None]
  - VENTRICULAR FIBRILLATION [None]
  - CARDIAC ARREST [None]
  - HYPOMAGNESAEMIA [None]
  - ANAPHYLACTOID REACTION [None]
  - HYPOKALAEMIA [None]
  - TORSADE DE POINTES [None]
